FAERS Safety Report 12764343 (Version 1)
Quarter: 2016Q3

REPORT INFORMATION
  Report Type: Spontaneous
  Country: US (occurrence: US)
  Receive Date: 20160920
  Receipt Date: 20160920
  Transmission Date: 20161109
  Serious: No
  Sender: FDA-Public Use
  Company Number: US-PFIZER INC-2016438656

PATIENT
  Age: 79 Year
  Sex: Female
  Weight: 43.54 kg

DRUGS (4)
  1. LYRICA [Suspect]
     Active Substance: PREGABALIN
     Indication: EYE PAIN
  2. LYRICA [Suspect]
     Active Substance: PREGABALIN
     Indication: HEADACHE
     Dosage: 50 MG, 3X/DAY
     Dates: start: 20160830
  3. LYRICA [Suspect]
     Active Substance: PREGABALIN
     Indication: EAR PAIN
  4. LYRICA [Suspect]
     Active Substance: PREGABALIN
     Indication: HERPES ZOSTER

REACTIONS (4)
  - Confusional state [Unknown]
  - Disturbance in attention [Unknown]
  - Amnesia [Unknown]
  - Drug ineffective [Unknown]
